FAERS Safety Report 14306357 (Version 2)
Quarter: 2018Q1

REPORT INFORMATION
  Report Type: Report from Study
  Country: None (occurrence: CH)
  Receive Date: 20171219
  Receipt Date: 20180119
  Transmission Date: 20180509
  Serious: Yes (Hospitalization)
  Sender: FDA-Public Use
  Company Number: CH-ABBVIE-17K-151-2198464-00

PATIENT
  Sex: Male

DRUGS (5)
  1. DUODOPA [Suspect]
     Active Substance: CARBIDOPA\LEVODOPA
     Indication: PARKINSON^S DISEASE
     Dosage: MD 6.0ML,CR DAY 3.0ML/H, CR NIGHT 1.5ML/H, ED 1.0ML, 24H
     Route: 050
     Dates: start: 20171115, end: 20171211
  2. DUODOPA [Suspect]
     Active Substance: CARBIDOPA\LEVODOPA
     Dosage: MD: 6ML CDD: 3.5ML/H CDN: 1.7ML/H EXTRA DOSE: 1ML
     Route: 050
  3. SYMMETREL [Concomitant]
     Active Substance: AMANTADINE HYDROCHLORIDE
     Indication: PRODUCT USED FOR UNKNOWN INDICATION
     Dates: end: 20171211
  4. DUODOPA [Suspect]
     Active Substance: CARBIDOPA\LEVODOPA
     Dosage: MD 6.0ML, CR DAY 3.5ML/H, CR NIGHT 2.0ML/H,  ED 0ML, 24H
     Route: 050
     Dates: start: 20171211, end: 20171218
  5. DUODOPA [Suspect]
     Active Substance: CARBIDOPA\LEVODOPA
     Dosage: MD 6.0ML,CR DAY 3.2ML/H, CR NIGHT 1.7ML/H, ED 1.0ML 24H
     Route: 050
     Dates: start: 20171218

REACTIONS (5)
  - Sleep disorder [Not Recovered/Not Resolved]
  - Freezing phenomenon [Not Recovered/Not Resolved]
  - Disorientation [Unknown]
  - Dyskinesia [Unknown]
  - Malaise [Unknown]

NARRATIVE: CASE EVENT DATE: 2017
